FAERS Safety Report 13276245 (Version 2)
Quarter: 2017Q1

REPORT INFORMATION
  Report Type: Spontaneous
  Country: US (occurrence: US)
  Receive Date: 20170228
  Receipt Date: 20170320
  Transmission Date: 20170428
  Serious: No
  Sender: FDA-Public Use
  Company Number: US-GLAXOSMITHKLINE-US2017026810

PATIENT
  Age: 47 Year
  Sex: Female
  Weight: 92.97 kg

DRUGS (1)
  1. NUCALA [Suspect]
     Active Substance: MEPOLIZUMAB
     Indication: PRODUCT USED FOR UNKNOWN INDICATION
     Dosage: UNK
     Route: 058
     Dates: start: 20170217

REACTIONS (6)
  - Palpitations [Unknown]
  - Headache [Unknown]
  - Heart rate increased [Unknown]
  - Pain in extremity [Unknown]
  - Epistaxis [Unknown]
  - Myalgia [Unknown]

NARRATIVE: CASE EVENT DATE: 20170220
